FAERS Safety Report 6978259-6 (Version None)
Quarter: 2010Q3

REPORT INFORMATION
  Report Type: 
  Country: None (occurrence: None)
  Receive Date: 20100913
  Receipt Date: 20100906
  Transmission Date: 20110219
  Serious: Yes (Disabling, Other)
  Sender: FDA-Public Use
  Company Number: JP-JNJFOC-20080301986

PATIENT
  Sex: Female
  Weight: 42 kg

DRUGS (6)
  1. ITRIZOLE [Suspect]
     Indication: SYSTEMIC MYCOSIS
     Route: 042
  2. ITRIZOLE [Suspect]
     Route: 042
  3. UNASYN [Concomitant]
     Indication: PROPHYLAXIS
     Route: 042
  4. DALACIN [Concomitant]
     Route: 042
  5. VANCOMYCIN [Concomitant]
     Indication: PROPHYLAXIS
     Route: 041
  6. MEROPENEM TRIHYDRATE [Concomitant]
     Indication: PROPHYLAXIS
     Route: 042

REACTIONS (2)
  - HEPATIC FUNCTION ABNORMAL [None]
  - RENAL IMPAIRMENT [None]
